FAERS Safety Report 11591175 (Version 2)
Quarter: 2017Q2

REPORT INFORMATION
  Report Type: Spontaneous
  Country: US (occurrence: US)
  Receive Date: 20151003
  Receipt Date: 20170623
  Transmission Date: 20170829
  Serious: No
  Sender: FDA-Public Use
  Company Number: US-APOTEX-2015AP008515

PATIENT
  Sex: Female

DRUGS (1)
  1. FENTANYL TRANSDERMAL SYSTEM [Suspect]
     Active Substance: FENTANYL
     Indication: PAIN
     Route: 062

REACTIONS (6)
  - Product substitution issue [Unknown]
  - Hot flush [Unknown]
  - Drug ineffective [Unknown]
  - Breakthrough pain [Unknown]
  - Skin burning sensation [Unknown]
  - Flushing [Unknown]
